FAERS Safety Report 13369848 (Version 1)
Quarter: 2017Q1

REPORT INFORMATION
  Report Type: Spontaneous
  Country: US (occurrence: US)
  Receive Date: 20170324
  Receipt Date: 20170324
  Transmission Date: 20170429
  Serious: No
  Sender: FDA-Public Use
  Company Number: US-ROCHE-1270563

PATIENT
  Sex: Male

DRUGS (2)
  1. FUROSEMIDE. [Concomitant]
     Active Substance: FUROSEMIDE
  2. XOLAIR [Suspect]
     Active Substance: OMALIZUMAB
     Indication: PRODUCT USED FOR UNKNOWN INDICATION
     Route: 065

REACTIONS (2)
  - Fluid retention [Unknown]
  - Swelling [Not Recovered/Not Resolved]
